FAERS Safety Report 22295956 (Version 1)
Quarter: 2023Q2

REPORT INFORMATION
  Report Type: Spontaneous
  Country: CN (occurrence: CN)
  Receive Date: 20230508
  Receipt Date: 20230508
  Transmission Date: 20230721
  Serious: Yes (Other)
  Sender: FDA-Public Use
  Company Number: CN-SA-SAC20230505000287

PATIENT
  Age: 75 Year
  Sex: Male
  Weight: 69 kg

DRUGS (3)
  1. OXALIPLATIN [Suspect]
     Active Substance: OXALIPLATIN
     Indication: Chemotherapy
     Dosage: 140MG,1X
     Route: 041
     Dates: start: 20230412, end: 20230412
  2. LEVOLEUCOVORIN CALCIUM [Concomitant]
     Active Substance: LEVOLEUCOVORIN CALCIUM
     Indication: Chemotherapy
     Dosage: 165MG,1X
     Route: 041
     Dates: start: 20230412, end: 20230412
  3. FLUOROURACIL [Concomitant]
     Active Substance: FLUOROURACIL
     Indication: Chemotherapy
     Dosage: 4.50G,1X
     Route: 041
     Dates: start: 20230412, end: 20230412

REACTIONS (9)
  - Mental impairment [Recovering/Resolving]
  - Abdominal mass [Recovering/Resolving]
  - Tenderness [Recovering/Resolving]
  - General physical health deterioration [Recovering/Resolving]
  - Sleep disorder [Recovering/Resolving]
  - Hiccups [Recovering/Resolving]
  - Nausea [Recovering/Resolving]
  - Decreased appetite [Recovering/Resolving]
  - Vomiting [Recovering/Resolving]

NARRATIVE: CASE EVENT DATE: 20230412
